FAERS Safety Report 20137074 (Version 1)
Quarter: 2021Q4

REPORT INFORMATION
  Report Type: Report from Study
  Country: LB (occurrence: LB)
  Receive Date: 20211201
  Receipt Date: 20211201
  Transmission Date: 20220303
  Serious: Yes (Death)
  Sender: FDA-Public Use
  Company Number: LB-002147023-NVSC2021LB268301

PATIENT

DRUGS (1)
  1. RUXOLITINIB [Suspect]
     Active Substance: RUXOLITINIB
     Indication: Myelofibrosis
     Dosage: 20 MG, BID (1 TAB BID)
     Route: 048
     Dates: start: 20190408, end: 202108

REACTIONS (2)
  - Product supply issue [Unknown]
  - COVID-19 [Fatal]

NARRATIVE: CASE EVENT DATE: 20210801
